FAERS Safety Report 10599736 (Version 2)
Quarter: 2014Q4

REPORT INFORMATION
  Report Type: Spontaneous
  Country: US (occurrence: US)
  Receive Date: 20141121
  Receipt Date: 20141229
  Transmission Date: 20150529
  Serious: No
  Sender: FDA-Public Use
  Company Number: US-009507513-1411USA008778

PATIENT
  Age: 72 Year
  Sex: Female
  Weight: 72.56 kg

DRUGS (1)
  1. OXYTROL FOR WOMEN [Suspect]
     Active Substance: OXYBUTYNIN
     Indication: URINARY INCONTINENCE
     Dosage: UNK, UNKNOWN
     Route: 062
     Dates: start: 20141115, end: 20141121

REACTIONS (2)
  - Chromaturia [Unknown]
  - Cystitis [Recovered/Resolved]
